FAERS Safety Report 20895652 (Version 2)
Quarter: 2022Q2

REPORT INFORMATION
  Report Type: Report from Study
  Country: BR (occurrence: BR)
  Receive Date: 20220531
  Receipt Date: 20220610
  Transmission Date: 20220720
  Serious: Yes (Hospitalization)
  Sender: FDA-Public Use
  Company Number: BR-ABBVIE-22K-020-4414812-00

PATIENT
  Age: 73 Year
  Sex: Female
  Weight: 40 kg

DRUGS (1)
  1. RINVOQ [Suspect]
     Active Substance: UPADACITINIB
     Indication: Rheumatoid arthritis
     Route: 048
     Dates: start: 20211004

REACTIONS (6)
  - Seizure [Recovering/Resolving]
  - Leukocytosis [Recovering/Resolving]
  - Pain in extremity [Unknown]
  - Arthralgia [Unknown]
  - Haematuria [Unknown]
  - Cough [Unknown]

NARRATIVE: CASE EVENT DATE: 20220522
